FAERS Safety Report 13182986 (Version 2)
Quarter: 2017Q1

REPORT INFORMATION
  Report Type: Spontaneous
  Country: US (occurrence: US)
  Receive Date: 20170203
  Receipt Date: 20170209
  Transmission Date: 20170428
  Serious: Yes (Hospitalization, Other)
  Sender: FDA-Public Use
  Company Number: US-PFIZER INC-2017046868

PATIENT
  Sex: Male

DRUGS (1)
  1. ZOLOFT [Suspect]
     Active Substance: SERTRALINE HYDROCHLORIDE
     Indication: ANXIETY
     Dosage: UNK
     Dates: start: 199012, end: 199012

REACTIONS (6)
  - Apparent death [Unknown]
  - Brain injury [Unknown]
  - Feeling abnormal [Unknown]
  - Overdose [Unknown]
  - Coma [Unknown]
  - Memory impairment [Unknown]

NARRATIVE: CASE EVENT DATE: 199012
